FAERS Safety Report 4932709-5 (Version None)
Quarter: 2006Q1

REPORT INFORMATION
  Report Type: 
  Country: None (occurrence: None)
  Receive Date: 20060304
  Receipt Date: 20060215
  Transmission Date: 20060701
  Serious: Yes (Other)
  Sender: FDA-Public Use
  Company Number: GB-BOEHRINGER INGELHEIM PHARMACEUTICALS, INC.-2006-BP-02422YA

PATIENT
  Sex: Male
  Weight: 80 kg

DRUGS (5)
  1. FLOMAX [Suspect]
     Indication: URINARY TRACT DISORDER
     Route: 048
     Dates: start: 20051101
  2. ZOLADEX [Concomitant]
     Dates: start: 20050901
  3. TRAMADOL HCL [Concomitant]
     Indication: SCIATICA
     Dates: start: 20040101, end: 20060119
  4. ACETAMINOPHEN [Concomitant]
  5. NAPROXEN [Concomitant]

REACTIONS (3)
  - DIPLOPIA [None]
  - EYE DISORDER [None]
  - VISUAL DISTURBANCE [None]
